FAERS Safety Report 22542018 (Version 3)
Quarter: 2023Q2

REPORT INFORMATION
  Report Type: Report from Study
  Country: CN (occurrence: None)
  Receive Date: 20230609
  Receipt Date: 20230615
  Transmission Date: 20230721
  Serious: Yes (Hospitalization, Other)
  Sender: FDA-Public Use
  Company Number: 2023A124962

PATIENT
  Age: 53 Year
  Sex: Male
  Weight: 53 kg

DRUGS (4)
  1. SAVOLITINIB [Suspect]
     Active Substance: SAVOLITINIB
     Indication: Non-small cell lung cancer
     Route: 048
     Dates: start: 20220623, end: 20220714
  2. SAVOLITINIB [Suspect]
     Active Substance: SAVOLITINIB
     Indication: Non-small cell lung cancer
     Route: 048
     Dates: start: 20230510, end: 20230515
  3. OSIMERTINIB [Suspect]
     Active Substance: OSIMERTINIB
     Indication: Non-small cell lung cancer
     Route: 048
     Dates: start: 20220623, end: 20220714
  4. OSIMERTINIB [Suspect]
     Active Substance: OSIMERTINIB
     Indication: Non-small cell lung cancer
     Route: 048
     Dates: start: 20230510, end: 20230515

REACTIONS (2)
  - Platelet count decreased [Not Recovered/Not Resolved]
  - Acute myeloid leukaemia [Not Recovered/Not Resolved]

NARRATIVE: CASE EVENT DATE: 20230522
